FAERS Safety Report 6611887-6 (Version None)
Quarter: 2010Q1

REPORT INFORMATION
  Report Type: 
  Country: None (occurrence: None)
  Receive Date: 20100226
  Receipt Date: 20100226
  Transmission Date: 20100710
  Serious: Yes (Hospitalization)
  Sender: FDA-Public Use
  Company Number: None

PATIENT
  Age: 39 Year
  Sex: Female

DRUGS (3)
  1. EMBEDA 30MG MORPHINE SULFATE KING PHARMACEUTICALS [Suspect]
  2. 1.2MG NALTREXONE [Suspect]
     Dosage: 1.2MG
  3. METHADONE HYDROCHLORIDE [Concomitant]

REACTIONS (1)
  - DRUG WITHDRAWAL SYNDROME [None]
